FAERS Safety Report 7715223-3 (Version None)
Quarter: 2011Q3

REPORT INFORMATION
  Report Type: 
  Country: None (occurrence: None)
  Receive Date: 20110829
  Receipt Date: 20101019
  Transmission Date: 20111222
  Serious: No
  Sender: FDA-Public Use
  Company Number: US-BAYER-201038084NA

PATIENT
  Age: 20 Year
  Sex: Female

DRUGS (2)
  1. MIRENA [Suspect]
     Indication: CONTRACEPTION
     Dosage: UNK
     Route: 015
     Dates: start: 20101008, end: 20101008
  2. MIRENA [Suspect]
     Dosage: UNK
     Route: 015
     Dates: start: 20101008

REACTIONS (1)
  - DEVICE EXPULSION [None]
